FAERS Safety Report 10476657 (Version 8)
Quarter: 2015Q3

REPORT INFORMATION
  Report Type: Report from Study
  Country: US (occurrence: US)
  Receive Date: 20140925
  Receipt Date: 20150818
  Transmission Date: 20151125
  Serious: Yes (Hospitalization)
  Sender: FDA-Public Use
  Company Number: US-SA-2014SA105248

PATIENT
  Age: 57 Year
  Sex: Male

DRUGS (3)
  1. AUBAGIO [Suspect]
     Active Substance: TERIFLUNOMIDE
     Indication: MULTIPLE SCLEROSIS
     Route: 048
     Dates: start: 20150725, end: 20150801
  2. AUBAGIO [Suspect]
     Active Substance: TERIFLUNOMIDE
     Indication: MULTIPLE SCLEROSIS
     Route: 048
     Dates: start: 2015
  3. AUBAGIO [Suspect]
     Active Substance: TERIFLUNOMIDE
     Indication: MULTIPLE SCLEROSIS
     Route: 048
     Dates: start: 20140725, end: 2015

REACTIONS (19)
  - Confusional state [Not Recovered/Not Resolved]
  - Emotional disorder [Unknown]
  - Blood pressure abnormal [Unknown]
  - Suicide attempt [Unknown]
  - Sneezing [Unknown]
  - Agitation [Recovering/Resolving]
  - Musculoskeletal discomfort [Unknown]
  - Amnesia [Not Recovered/Not Resolved]
  - Memory impairment [Unknown]
  - Stress [Unknown]
  - Malaise [Unknown]
  - Suicidal ideation [Recovering/Resolving]
  - Poor quality sleep [Unknown]
  - Nausea [Unknown]
  - Fatigue [Unknown]
  - Therapeutic response unexpected [Unknown]
  - Fall [Unknown]
  - Headache [Unknown]
  - Joint injury [Unknown]

NARRATIVE: CASE EVENT DATE: 201407
